FAERS Safety Report 20219536 (Version 1)
Quarter: 2021Q4

REPORT INFORMATION
  Report Type: Spontaneous
  Country: TR (occurrence: TR)
  Receive Date: 20211222
  Receipt Date: 20211222
  Transmission Date: 20220303
  Serious: Yes (Hospitalization, Other)
  Sender: FDA-Public Use
  Company Number: TR-SCIEGENP-2021SCLIT01008

PATIENT
  Age: 56 Year
  Sex: Male

DRUGS (1)
  1. PREGABALIN [Suspect]
     Active Substance: PREGABALIN
     Indication: Product used for unknown indication
     Route: 065

REACTIONS (4)
  - Drug abuse [Recovering/Resolving]
  - Substance-induced psychotic disorder [Recovering/Resolving]
  - Postoperative delirium [Recovered/Resolved]
  - Cognitive disorder [Recovering/Resolving]
